FAERS Safety Report 5122176-3 (Version None)
Quarter: 2006Q4

REPORT INFORMATION
  Report Type: 
  Country: None (occurrence: None)
  Receive Date: 20061006
  Receipt Date: 20060928
  Transmission Date: 20070319
  Serious: Yes (Hospitalization)
  Sender: FDA-Public Use
  Company Number: US-ABBOTT-06P-163-0345422-00

PATIENT
  Sex: Female
  Weight: 95.34 kg

DRUGS (13)
  1. HUMIRA [Suspect]
     Indication: RHEUMATOID ARTHRITIS
     Route: 058
     Dates: start: 20050901
  2. PREDNISONE TAB [Concomitant]
     Indication: DRUG USE FOR UNKNOWN INDICATION
     Route: 048
  3. METHOTREXATE [Concomitant]
     Indication: RHEUMATOID ARTHRITIS
     Route: 048
  4. ALENDRONATE SODIUM [Concomitant]
     Indication: DRUG USE FOR UNKNOWN INDICATION
     Route: 048
  5. SETRALINE HCL [Concomitant]
     Indication: DRUG USE FOR UNKNOWN INDICATION
     Route: 048
  6. VENLAFAXINE HYDROCHLORIDE [Concomitant]
     Indication: DRUG USE FOR UNKNOWN INDICATION
     Route: 048
  7. CARISOPRODOL [Concomitant]
     Indication: MUSCLE SPASMS
     Route: 048
  8. CLONAZEPAM [Concomitant]
     Indication: ANXIETY
     Route: 048
  9. ESOMEPRAZOLE MAGNESIUM [Concomitant]
     Indication: GASTROOESOPHAGEAL REFLUX DISEASE
     Route: 048
  10. METHADONE HCL [Concomitant]
     Indication: PAIN
     Route: 048
  11. HYDROCODONE BITARTRATE [Concomitant]
     Indication: PAIN
     Dosage: 10/650 MILLIGRAM
  12. GABAPENTIN [Concomitant]
     Indication: PAIN
     Route: 048
  13. TERFENADINE [Concomitant]
     Indication: DRUG USE FOR UNKNOWN INDICATION
     Route: 048

REACTIONS (12)
  - CHONDROMALACIA [None]
  - FALL [None]
  - JOINT DISLOCATION [None]
  - LIGAMENT INJURY [None]
  - MENISCUS LESION [None]
  - PAIN [None]
  - PELVIC FRACTURE [None]
  - PELVIC PAIN [None]
  - RED BLOOD CELL SEDIMENTATION RATE INCREASED [None]
  - RIB FRACTURE [None]
  - ROAD TRAFFIC ACCIDENT [None]
  - TENDON RUPTURE [None]
